FAERS Safety Report 7242549-2 (Version None)
Quarter: 2011Q1

REPORT INFORMATION
  Report Type: 
  Country: None (occurrence: None)
  Receive Date: 20110114
  Receipt Date: 20101230
  Transmission Date: 20110831
  Serious: Yes (Other)
  Sender: FDA-Public Use
  Company Number: 2010NA000062

PATIENT
  Age: 41 Year
  Sex: Female

DRUGS (4)
  1. ETANERCEPT [Concomitant]
  2. CELECOXIB [Concomitant]
  3. DICLOFENAC SODIUM [Suspect]
     Indication: PSORIATIC ARTHROPATHY
  4. DICLOFENAC SODIUM [Suspect]
     Indication: PSORIATIC ARTHROPATHY

REACTIONS (2)
  - COLITIS COLLAGENOUS [None]
  - DEHYDRATION [None]
